FAERS Safety Report 8523585-2 (Version None)
Quarter: 2012Q3

REPORT INFORMATION
  Report Type: 
  Country: None (occurrence: None)
  Receive Date: 20120720
  Receipt Date: 20111025
  Transmission Date: 20120928
  Serious: No
  Sender: FDA-Public Use
  Company Number: US-BAYER-201014042NA

PATIENT
  Age: 26 Year
  Sex: Female
  Weight: 89 kg

DRUGS (8)
  1. YASMIN [Suspect]
     Indication: ACNE
  2. YAZ [Suspect]
     Indication: CONTRACEPTION
     Dosage: UNK
     Route: 048
     Dates: start: 20080501, end: 20091001
  3. YASMIN [Suspect]
     Indication: CONTRACEPTION
  4. FLAXSEED OIL [Concomitant]
  5. YAZ [Suspect]
     Indication: ENDOMETRIOSIS
  6. YAZ [Suspect]
     Indication: ACNE
  7. FIBER [Concomitant]
     Indication: CONSTIPATION
  8. YASMIN [Suspect]
     Indication: ENDOMETRIOSIS
     Dosage: 1 DF (DAILY DOSE), QD, ORAL
     Route: 048
     Dates: start: 20080501, end: 20091001

REACTIONS (5)
  - GALLBLADDER DISORDER [None]
  - NAUSEA [None]
  - ABDOMINAL PAIN UPPER [None]
  - ABDOMINAL PAIN [None]
  - WEIGHT INCREASED [None]
